FAERS Safety Report 9628526 (Version 2)
Quarter: 2013Q4

REPORT INFORMATION
  Report Type: Spontaneous
  Country: None (occurrence: US)
  Receive Date: 20131017
  Receipt Date: 20131017
  Transmission Date: 20140711
  Serious: Yes (Other)
  Sender: FDA-Public Use
  Company Number: US-ACCORD-019927

PATIENT
  Age: 54 Year
  Sex: Female

DRUGS (4)
  1. TOPIRAMATE [Suspect]
     Indication: MIGRAINE
  2. ESCITALOPRAM [Suspect]
     Indication: DEPRESSION
  3. FLUNARIZINE [Suspect]
     Indication: MIGRAINE
     Route: 048
  4. VALPROATE [Concomitant]
     Route: 042

REACTIONS (10)
  - Depression [Recovering/Resolving]
  - Suicidal ideation [Recovered/Resolved]
  - Drug ineffective [Unknown]
  - Insomnia [Recovered/Resolved]
  - Decreased appetite [Recovered/Resolved]
  - Weight decreased [Unknown]
  - Disturbance in attention [Unknown]
  - Memory impairment [Unknown]
  - Abnormal behaviour [Unknown]
  - Off label use [Unknown]
